FAERS Safety Report 23182136 (Version 1)
Quarter: 2023Q4

REPORT INFORMATION
  Report Type: Spontaneous
  Country: US (occurrence: None)
  Receive Date: 20231114
  Receipt Date: 20231114
  Transmission Date: 20240109
  Serious: Yes (Disabling)
  Sender: FDA-Public Use
  Company Number: None

PATIENT
  Age: 83 Year
  Sex: Female
  Weight: 76.5 kg

DRUGS (7)
  1. FERAHEME [Suspect]
     Active Substance: FERUMOXYTOL NON-STOICHIOMETRIC MAGNETITE
  2. LEVOTHYROXINE [Concomitant]
     Active Substance: LEVOTHYROXINE
  3. TRIAMTERENE [Concomitant]
     Active Substance: TRIAMTERENE
  4. VITAMIN D3 [Concomitant]
     Active Substance: CHOLECALCIFEROL
  5. VITAMIN B12 [Concomitant]
     Active Substance: CYANOCOBALAMIN
  6. FOLIC ACID [Concomitant]
     Active Substance: FOLIC ACID
  7. VITAMIN C [Concomitant]
     Active Substance: ASCORBIC ACID

REACTIONS (10)
  - Faeces discoloured [None]
  - Headache [None]
  - Dizziness [None]
  - Fatigue [None]
  - Asthenia [None]
  - Cognitive disorder [None]
  - Dry mouth [None]
  - Memory impairment [None]
  - Brain injury [None]
  - Dementia [None]

NARRATIVE: CASE EVENT DATE: 20230627
